FAERS Safety Report 22372498 (Version 5)
Quarter: 2023Q4

REPORT INFORMATION
  Report Type: Report from Study
  Country: JP (occurrence: JP)
  Receive Date: 20230526
  Receipt Date: 20231109
  Transmission Date: 20240109
  Serious: Yes (Hospitalization, Other)
  Sender: FDA-Public Use
  Company Number: JP-ASTELLAS-2022JP010398

PATIENT
  Age: 51 Year
  Sex: Male
  Weight: 60 kg

DRUGS (13)
  1. ENFORTUMAB VEDOTIN [Suspect]
     Active Substance: ENFORTUMAB VEDOTIN
     Indication: Bladder cancer
     Dosage: 1.25 MG/KG (75 MG/DOSE), UNKNOWN FREQ.
     Route: 041
     Dates: start: 20220309, end: 20220323
  2. ENFORTUMAB VEDOTIN [Suspect]
     Active Substance: ENFORTUMAB VEDOTIN
     Dosage: 1.25 MG/KG (75 MG/DOSE), UNKNOWN FREQ.
     Route: 041
     Dates: start: 20220421, end: 20220428
  3. ENFORTUMAB VEDOTIN [Suspect]
     Active Substance: ENFORTUMAB VEDOTIN
     Dosage: 1.25 MG/KG (75 MG/DOSE), UNKNOWN FREQ.
     Route: 041
     Dates: start: 20220512, end: 20220519
  4. ENFORTUMAB VEDOTIN [Suspect]
     Active Substance: ENFORTUMAB VEDOTIN
     Dosage: 1.12 MG/KG (60 MG/DOSE), UNKNOWN FREQ.
     Route: 041
     Dates: start: 20220602, end: 20220602
  5. ENFORTUMAB VEDOTIN [Suspect]
     Active Substance: ENFORTUMAB VEDOTIN
     Dosage: 1.12 MG/KG (60 MG/DOSE), UNKNOWN FREQ.
     Route: 041
     Dates: start: 20220616, end: 20220728
  6. ENFORTUMAB VEDOTIN [Suspect]
     Active Substance: ENFORTUMAB VEDOTIN
     Dosage: 1.12 MG/KG (60 MG/DOSE), UNKNOWN FREQ.
     Route: 041
     Dates: start: 20220818, end: 20230105
  7. ENFORTUMAB VEDOTIN [Suspect]
     Active Substance: ENFORTUMAB VEDOTIN
     Dosage: 1.12 MG/KG (60 MG/DOSE), UNKNOWN FREQ.
     Route: 041
     Dates: start: 20230119, end: 20230126
  8. FLUTICASONE FUROATE\VILANTEROL TRIFENATATE [Concomitant]
     Active Substance: FLUTICASONE FUROATE\VILANTEROL TRIFENATATE
     Indication: Asthma
     Dosage: 1 INHALATION (RELVAR 200, ELLIPTA 30 INHALATION), ONCE DAILY
     Route: 050
     Dates: start: 20220518
  9. PROCATEROL HYDROCHLORIDE [Concomitant]
     Active Substance: PROCATEROL HYDROCHLORIDE
     Indication: Asthma
     Route: 050
     Dates: start: 20220518, end: 20220608
  10. CEFAZOLIN SODIUM [Concomitant]
     Active Substance: CEFAZOLIN SODIUM
     Indication: Vascular device infection
     Route: 065
     Dates: start: 20220407, end: 20220413
  11. BETAMETHASONE DIPROPIONATE [Concomitant]
     Active Substance: BETAMETHASONE DIPROPIONATE
     Indication: Product used for unknown indication
     Dosage: UNK UNK, UNKNOWN FREQ.
     Route: 050
  12. DIFLUPREDNATE [Concomitant]
     Active Substance: DIFLUPREDNATE
     Indication: Product used for unknown indication
     Dosage: UNK UNK, UNKNOWN FREQ.
     Route: 050
  13. CALONAL [Concomitant]
     Active Substance: ACETAMINOPHEN
     Indication: Product used for unknown indication
     Dosage: UNK UNK, UNKNOWN FREQ.
     Route: 048
     Dates: start: 20220802

REACTIONS (5)
  - Asthma [Recovering/Resolving]
  - Vascular device infection [Recovered/Resolved]
  - Hypoaesthesia [Not Recovered/Not Resolved]
  - Skin disorder [Recovering/Resolving]
  - Inappropriate schedule of product administration [Unknown]

NARRATIVE: CASE EVENT DATE: 20220316
